FAERS Safety Report 6497415-7 (Version None)
Quarter: 2009Q4

REPORT INFORMATION
  Report Type: 
  Country: None (occurrence: None)
  Receive Date: 20091215
  Receipt Date: 20091209
  Transmission Date: 20100525
  Serious: Yes (Hospitalization)
  Sender: FDA-Public Use
  Company Number: FR-ASTRAZENECA-2009SE24771

PATIENT
  Age: 84 Year
  Sex: Male

DRUGS (8)
  1. NEXIUM [Suspect]
     Indication: PROPHYLAXIS AGAINST GASTROINTESTINAL ULCER
     Route: 048
     Dates: start: 20080911, end: 20081024
  2. MABTHERA [Suspect]
     Indication: LYMPHOMA
     Dosage: HALF USUAL DOSE
     Route: 042
     Dates: start: 20081015, end: 20081015
  3. BENDAMUSTINE [Suspect]
     Indication: LYMPHOMA
     Dosage: SINGLE DOSE
     Route: 042
     Dates: start: 20081015, end: 20081015
  4. ZYLORIC [Suspect]
     Indication: HYPERURICAEMIA
     Route: 048
     Dates: start: 20080911, end: 20081024
  5. LEVOTHYROXINE SODIUM [Concomitant]
     Route: 048
  6. OMIX [Concomitant]
     Route: 048
  7. TAHOR [Concomitant]
     Route: 048
  8. STILNOX [Concomitant]
     Route: 048

REACTIONS (3)
  - CHOLESTASIS [None]
  - PYREXIA [None]
  - RASH [None]
